FAERS Safety Report 10765820 (Version 1)
Quarter: 2015Q1

REPORT INFORMATION
  Report Type: Spontaneous
  Country: US (occurrence: None)
  Receive Date: 20150204
  Receipt Date: 20150204
  Transmission Date: 20150721
  Serious: Yes (Hospitalization)
  Sender: FDA-Public Use
  Company Number: None

PATIENT
  Age: 70 Year
  Sex: Female
  Weight: 86 kg

DRUGS (19)
  1. GLIMEPIRIDE. [Suspect]
     Active Substance: GLIMEPIRIDE
     Indication: DIABETES MELLITUS
     Route: 048
  2. APAP [Concomitant]
     Active Substance: ACETAMINOPHEN
  3. ZESTRIL [Concomitant]
     Active Substance: LISINOPRIL
  4. APAP [Concomitant]
     Active Substance: ACETAMINOPHEN
  5. NORCO [Concomitant]
     Active Substance: ACETAMINOPHEN\HYDROCODONE BITARTRATE
  6. DITROPAN XL [Concomitant]
     Active Substance: OXYBUTYNIN CHLORIDE
  7. FURSEMIDE [Concomitant]
  8. NEXIUM [Concomitant]
     Active Substance: ESOMEPRAZOLE MAGNESIUM
  9. KDUR [Concomitant]
  10. DEMADEX [Concomitant]
     Active Substance: TORSEMIDE
  11. ZAROXOLY [Concomitant]
  12. VITAMIN C [Concomitant]
     Active Substance: ASCORBIC ACID
  13. ADVAIR HFA [Concomitant]
     Active Substance: FLUTICASONE PROPIONATE\SALMETEROL XINAFOATE
  14. MIRAPEX [Concomitant]
     Active Substance: PRAMIPEXOLE DIHYDROCHLORIDE
  15. OXACILLIN [Concomitant]
     Active Substance: OXACILLIN SODIUM
  16. PRAVACHOL [Concomitant]
     Active Substance: PRAVASTATIN SODIUM
  17. LIDODERM [Concomitant]
     Active Substance: LIDOCAINE
  18. PROVENTIL [Concomitant]
     Active Substance: ALBUTEROL
  19. MS CONTIN [Concomitant]
     Active Substance: MORPHINE SULFATE

REACTIONS (1)
  - Hypoglycaemia [None]

NARRATIVE: CASE EVENT DATE: 20141015
